FAERS Safety Report 16765787 (Version 1)
Quarter: 2019Q3

REPORT INFORMATION
  Report Type: Report from Study
  Country: CR (occurrence: CR)
  Receive Date: 20190903
  Receipt Date: 20190903
  Transmission Date: 20191005
  Serious: Yes (Other)
  Sender: FDA-Public Use
  Company Number: PHHY2018CR048682

PATIENT
  Age: 54 Year
  Sex: Male

DRUGS (1)
  1. SANDOSTATIN LAR DEPOT [Suspect]
     Active Substance: OCTREOTIDE ACETATE
     Indication: PRODUCT USED FOR UNKNOWN INDICATION
     Dosage: 20 MG, UNK
     Route: 065
     Dates: start: 201802

REACTIONS (13)
  - Viral infection [Unknown]
  - Cold sweat [Unknown]
  - Cardiomegaly [Unknown]
  - Stomatitis [Unknown]
  - Asthenia [Unknown]
  - Malaise [Not Recovered/Not Resolved]
  - Somnolence [Unknown]
  - Diabetes mellitus [Unknown]
  - Fatigue [Unknown]
  - Gait inability [Unknown]
  - Androgen deficiency [Unknown]
  - Nausea [Recovering/Resolving]
  - Scar [Unknown]
